FAERS Safety Report 20087105 (Version 7)
Quarter: 2023Q2

REPORT INFORMATION
  Report Type: Spontaneous
  Country: US (occurrence: US)
  Receive Date: 20211118
  Receipt Date: 20230621
  Transmission Date: 20230721
  Serious: No
  Sender: FDA-Public Use
  Company Number: US-PFIZER INC-202101408206

PATIENT
  Age: 95 Year
  Sex: Female
  Weight: 61.23 kg

DRUGS (1)
  1. PREMARIN [Suspect]
     Active Substance: ESTROGENS, CONJUGATED
     Dosage: 1 G, WEEKLY
     Route: 067

REACTIONS (7)
  - Product prescribing error [Unknown]
  - Product dispensing error [Unknown]
  - Product use issue [Unknown]
  - Off label use [Unknown]
  - Arthritis [Unknown]
  - Finger deformity [Unknown]
  - Hand deformity [Unknown]
